FAERS Safety Report 13071707 (Version 1)
Quarter: 2016Q4

REPORT INFORMATION
  Report Type: Report from Study
  Country: FR (occurrence: FR)
  Receive Date: 20161229
  Receipt Date: 20161229
  Transmission Date: 20170207
  Serious: Yes (Other)
  Sender: FDA-Public Use
  Company Number: FR-PFIZER INC-2016597951

PATIENT
  Age: 45 Year
  Sex: Male
  Weight: 65 kg

DRUGS (10)
  1. SOLU-MEDROL [Concomitant]
     Active Substance: METHYLPREDNISOLONE SODIUM SUCCINATE
     Indication: APLASTIC ANAEMIA
     Dosage: 60 MG, 2X/DAY
     Route: 042
     Dates: start: 20161216
  2. PARACETAMOL [Concomitant]
     Active Substance: ACETAMINOPHEN
     Indication: PROPHYLAXIS
     Dosage: 1 G, 1X/DAY
     Route: 042
     Dates: start: 20161216, end: 20161219
  3. VALACICLOVIR [Concomitant]
     Active Substance: VALACYCLOVIR HYDROCHLORIDE
     Dosage: 500 MG, 2X/DAY
     Route: 048
     Dates: start: 20161208
  4. TAZOCILLINE [Concomitant]
     Active Substance: PIPERACILLIN SODIUM\TAZOBACTAM SODIUM
     Indication: PYREXIA
     Dosage: 4 G, 4X/DAY
     Route: 042
     Dates: start: 20161201, end: 20161207
  5. NOXAFIL [Concomitant]
     Active Substance: POSACONAZOLE
     Indication: PROPHYLAXIS
     Dosage: 300 MG, 1X/DAY
     Route: 048
     Dates: start: 20161127, end: 20161209
  6. ATGAM [Suspect]
     Active Substance: EQUINE THYMOCYTE IMMUNE GLOBULIN
     Indication: APLASTIC ANAEMIA
     Dosage: 40 MG/KG, DAILY
     Route: 042
     Dates: start: 20161216, end: 20161219
  7. POLARAMINE [Concomitant]
     Active Substance: DEXCHLORPHENIRAMINE MALEATE
     Indication: PROPHYLAXIS
     Dosage: 5 MG, 2X/DAY
     Route: 042
     Dates: start: 20161216, end: 20161219
  8. NEORAL [Concomitant]
     Active Substance: CYCLOSPORINE
     Dosage: 300 MG, 2X/DAY
     Route: 048
     Dates: start: 20161216
  9. MYCAMINE [Concomitant]
     Active Substance: MICAFUNGIN SODIUM
     Indication: PROPHYLAXIS
     Dosage: 50 MG, 1X/DAY
     Route: 042
     Dates: start: 20161209, end: 20161215
  10. TAZOCILLINE [Concomitant]
     Active Substance: PIPERACILLIN SODIUM\TAZOBACTAM SODIUM
     Indication: NEUTROPENIA

REACTIONS (2)
  - Hepatitis [Recovering/Resolving]
  - Cholestasis [Not Recovered/Not Resolved]

NARRATIVE: CASE EVENT DATE: 20161218
